FAERS Safety Report 11388744 (Version 2)
Quarter: 2015Q3

REPORT INFORMATION
  Report Type: Spontaneous
  Country: VE (occurrence: VE)
  Receive Date: 20150817
  Receipt Date: 20150824
  Transmission Date: 20151125
  Serious: Yes (Death)
  Sender: FDA-Public Use
  Company Number: VE-PFIZER INC-2015269172

PATIENT
  Age: 42 Year
  Sex: Female

DRUGS (6)
  1. ANFOTERICINA B [Concomitant]
     Indication: PYREXIA
     Dosage: UNK
     Route: 042
     Dates: start: 20150808, end: 20150810
  2. ANFOTERICINA B [Concomitant]
     Indication: PNEUMONIA
  3. VORICONAZOLE. [Suspect]
     Active Substance: VORICONAZOLE
  4. MEROPENEM. [Concomitant]
     Active Substance: MEROPENEM
     Indication: PNEUMONIA
  5. ZYVOX [Suspect]
     Active Substance: LINEZOLID
     Indication: PNEUMONIA
     Dosage: 600 MG, 2X/DAY
     Route: 042
     Dates: start: 20150805, end: 20150810
  6. MEROPENEM. [Concomitant]
     Active Substance: MEROPENEM
     Indication: PYREXIA
     Dosage: UNK
     Route: 042
     Dates: start: 20150805, end: 20150810

REACTIONS (1)
  - Lactic acidosis [Fatal]
